FAERS Safety Report 4741601-0 (Version None)
Quarter: 2005Q3

REPORT INFORMATION
  Report Type: 
  Country: None (occurrence: None)
  Receive Date: 20050808
  Receipt Date: 20050727
  Transmission Date: 20060218
  Serious: Yes (Hospitalization, Other)
  Sender: FDA-Public Use
  Company Number: GBS050718035

PATIENT
  Sex: Female

DRUGS (4)
  1. YENTREVE (DULOXETINE HYDROCHLORIDE) [Suspect]
     Indication: STRESS INCONTINENCE
     Dosage: 80 MG DAY
     Dates: start: 20050623
  2. ACTONEL [Concomitant]
  3. ELTROXIN (LEVOTHYROXINE SODIUM) [Concomitant]
  4. CALCICHEW D3 FORTE [Concomitant]

REACTIONS (6)
  - ASTHENIA [None]
  - CONFUSIONAL STATE [None]
  - HALLUCINATION [None]
  - HYPONATRAEMIA [None]
  - NAUSEA [None]
  - STUPOR [None]
